FAERS Safety Report 7426390-3 (Version None)
Quarter: 2011Q2

REPORT INFORMATION
  Report Type: 
  Country: None (occurrence: None)
  Receive Date: 20110420
  Receipt Date: 20110308
  Transmission Date: 20111010
  Serious: Yes (Hospitalization)
  Sender: FDA-Public Use
  Company Number: US-BAYER-2011-006934

PATIENT
  Age: 46 Year
  Sex: Female
  Weight: 86.168 kg

DRUGS (12)
  1. YAZ [Suspect]
     Indication: MENSTRUATION IRREGULAR
     Dosage: UNK
     Dates: start: 20070312, end: 20080930
  2. YAZ [Suspect]
     Dosage: UNK
     Dates: start: 20091024, end: 20091230
  3. BUDEPRION [Concomitant]
  4. ZOLPIDEM [Concomitant]
  5. YASMIN [Suspect]
     Indication: PRODUCT USED FOR UNKNOWN INDICATION
  6. OCELLA [Suspect]
     Indication: MENSTRUATION IRREGULAR
     Dosage: UNK
     Dates: start: 20090928
  7. WARFARIN SODIUM [Concomitant]
  8. AUGMENTIN [Concomitant]
  9. YAZ [Suspect]
     Dosage: UNK
     Dates: start: 20090207, end: 20090825
  10. WELLBUTRIN [Concomitant]
  11. BUTALBITAL [Concomitant]
  12. ASPIRIN [Concomitant]

REACTIONS (1)
  - INTRACRANIAL VENOUS SINUS THROMBOSIS [None]
